FAERS Safety Report 7437064-7 (Version None)
Quarter: 2011Q2

REPORT INFORMATION
  Report Type: 
  Country: None (occurrence: None)
  Receive Date: 20110426
  Receipt Date: 20110413
  Transmission Date: 20111010
  Serious: Yes (Other)
  Sender: FDA-Public Use
  Company Number: PHHY2010MX44618

PATIENT
  Sex: Female

DRUGS (4)
  1. ACLASTA [Suspect]
     Indication: OSTEOPOROSIS
     Dosage: 5 MG ONCE YEARLY
     Route: 042
     Dates: start: 20090716
  2. ALENDRONATE SODIUM [Concomitant]
  3. CALCITRIOL [Concomitant]
  4. FOLIVITAL [Concomitant]

REACTIONS (11)
  - BACK PAIN [None]
  - BLOOD TRIGLYCERIDES INCREASED [None]
  - HEPATITIS [None]
  - DEPRESSED MOOD [None]
  - BLOOD CHOLESTEROL INCREASED [None]
  - INFLAMMATION [None]
  - PYREXIA [None]
  - JAUNDICE [None]
  - ABDOMINAL PAIN [None]
  - PRURITUS [None]
  - LIVER DISORDER [None]
